FAERS Safety Report 7509955-X (Version None)
Quarter: 2011Q2

REPORT INFORMATION
  Report Type: 
  Country: None (occurrence: None)
  Receive Date: 20110527
  Receipt Date: 20110516
  Transmission Date: 20111010
  Serious: Yes (Hospitalization)
  Sender: FDA-Public Use
  Company Number: US-JNJFOC-20110508230

PATIENT
  Sex: Male
  Weight: 54.2 kg

DRUGS (3)
  1. MESALAMINE [Concomitant]
  2. REMICADE [Suspect]
     Indication: INFLAMMATORY BOWEL DISEASE
     Route: 042
     Dates: start: 20070308
  3. REMICADE [Suspect]
     Route: 042
     Dates: start: 20110131

REACTIONS (1)
  - CONSTIPATION [None]
